FAERS Safety Report 13851126 (Version 3)
Quarter: 2017Q4

REPORT INFORMATION
  Report Type: Report from Study
  Country: RU (occurrence: RU)
  Receive Date: 20170809
  Receipt Date: 20171031
  Transmission Date: 20180320
  Serious: Yes (Other)
  Sender: FDA-Public Use
  Company Number: RU-BEH-2017082761

PATIENT
  Age: 47 Year
  Sex: Female

DRUGS (13)
  1. PRIVIGEN [Suspect]
     Active Substance: HUMAN IMMUNOGLOBULIN G
     Dosage: UNK
     Route: 042
  2. PRIVIGEN [Suspect]
     Active Substance: HUMAN IMMUNOGLOBULIN G
     Dosage: 33 G, SINGLE; 1.6ML/KG/H
     Route: 042
     Dates: start: 20170518
  3. PRIVIGEN [Suspect]
     Active Substance: HUMAN IMMUNOGLOBULIN G
     Dosage: 30.3 G, SINGLE; 2.1ML/KG/H
     Route: 042
     Dates: start: 20170706
  4. SYMBICORT [Concomitant]
     Active Substance: BUDESONIDE\FORMOTEROL FUMARATE DIHYDRATE
     Dosage: 160/4.5 MCG, BID
     Route: 055
     Dates: start: 2015
  5. KLACID                             /00984601/ [Concomitant]
     Active Substance: CLARITHROMYCIN
     Dosage: 500 MG, QD
     Route: 065
     Dates: start: 20170313
  6. PRIVIGEN [Suspect]
     Active Substance: HUMAN IMMUNOGLOBULIN G
     Dosage: 31.21 G, SINGLE; 1.07ML/KG/H
     Route: 042
     Dates: start: 20170613
  7. PRIVIGEN [Suspect]
     Active Substance: HUMAN IMMUNOGLOBULIN G
     Indication: PRIMARY IMMUNODEFICIENCY SYNDROME
     Dosage: 29.88 G, SINGLE; 1.4ML/KG/H
     Route: 042
     Dates: start: 20170727
  8. LOZAP /00661201/ [Concomitant]
     Active Substance: OMEPRAZOLE
     Dosage: 50/12.5 MG, QD
     Route: 065
     Dates: start: 20170314
  9. OFLOXACIN. [Concomitant]
     Active Substance: OFLOXACIN
     Route: 065
  10. ORNIDAZOLE [Concomitant]
     Active Substance: ORNIDAZOLE
     Route: 065
  11. L-THYROXIN [Concomitant]
     Active Substance: LEVOTHYROXINE SODIUM
     Dosage: 100 ?G, QD
     Route: 065
     Dates: start: 201510
  12. GRANDAXIN [Concomitant]
     Active Substance: TOFISOPAM
     Dosage: 50 MG, QD
     Route: 065
     Dates: start: 20170322
  13. NASONEX [Concomitant]
     Active Substance: MOMETASONE FUROATE
     Dosage: 400 ?G, BID
     Route: 045
     Dates: start: 2015

REACTIONS (2)
  - Lymphopenia [Recovered/Resolved]
  - Lymphopenia [Not Recovered/Not Resolved]

NARRATIVE: CASE EVENT DATE: 20170728
